FAERS Safety Report 7101946-6 (Version None)
Quarter: 2010Q4

REPORT INFORMATION
  Report Type: 
  Country: None (occurrence: None)
  Receive Date: 20101115
  Receipt Date: 20101109
  Transmission Date: 20110411
  Serious: Yes (Other)
  Sender: FDA-Public Use
  Company Number: DE-SANOFI-AVENTIS-2010SA068136

PATIENT
  Age: 56 Year
  Sex: Male

DRUGS (2)
  1. MULTAQ [Suspect]
     Route: 065
     Dates: start: 20100601
  2. METOPROLOL [Suspect]
     Route: 065
     Dates: start: 20100601

REACTIONS (2)
  - PHLEBITIS [None]
  - VEIN DISORDER [None]
